FAERS Safety Report 9494124 (Version 2)
Quarter: 2014Q1

REPORT INFORMATION
  Report Type: Spontaneous
  Country: JP (occurrence: JP)
  Receive Date: 20130903
  Receipt Date: 20140303
  Transmission Date: 20141002
  Serious: Yes (Other)
  Sender: FDA-Public Use
  Company Number: PHHY2013JP094513

PATIENT
  Sex: Male

DRUGS (5)
  1. SIMULECT [Suspect]
     Indication: LIVER TRANSPLANT
     Dosage: 20 MG,
     Route: 042
  2. PREDNISOLONE SANDOZ [Suspect]
     Indication: IMMUNOSUPPRESSION
     Dosage: UNK
  3. TACROLIMUS [Concomitant]
     Indication: IMMUNOSUPPRESSION
     Dosage: UNK
  4. CELLCEPT [Concomitant]
     Indication: IMMUNOSUPPRESSION
     Dosage: UNK
  5. ADRENAL CORTEX PREPARATIONS [Concomitant]
     Dosage: UNK

REACTIONS (8)
  - Liver transplant rejection [Unknown]
  - Hepatic function abnormal [Unknown]
  - Cytomegalovirus infection [Unknown]
  - Bacterial infection [Unknown]
  - Hepatic failure [Unknown]
  - Bile duct stenosis [Unknown]
  - Cholangitis [Unknown]
  - Drug ineffective [Unknown]
